FAERS Safety Report 11074977 (Version 1)
Quarter: 2015Q2

REPORT INFORMATION
  Report Type: Other
  Country: GB (occurrence: GB)
  Receive Date: 20150429
  Receipt Date: 20150429
  Transmission Date: 20150821
  Serious: Yes (Other)
  Sender: FDA-Public Use
  Company Number: GB-PERRIGO-15GB004253

PATIENT

DRUGS (2)
  1. CETIRIZINE HYDROCHLORIDE 16208/0066 10 MG [Suspect]
     Active Substance: CETIRIZINE HYDROCHLORIDE
     Indication: FOOD ALLERGY
     Dosage: UNK
     Route: 065
     Dates: start: 2015, end: 2015
  2. RAMIPRIL. [Suspect]
     Active Substance: RAMIPRIL
     Indication: BLOOD PRESSURE ABNORMAL
     Dosage: 5 MG, UNK
     Route: 065
     Dates: start: 2007, end: 2015

REACTIONS (6)
  - Lip swelling [Unknown]
  - Blood pressure increased [Unknown]
  - Muscle tightness [Unknown]
  - Hypersensitivity [Unknown]
  - Feeling abnormal [Unknown]
  - Feeling hot [Unknown]

NARRATIVE: CASE EVENT DATE: 201503
